FAERS Safety Report 5753207-5 (Version None)
Quarter: 2008Q2

REPORT INFORMATION
  Report Type: 
  Country: None (occurrence: None)
  Receive Date: 20080530
  Receipt Date: 20070502
  Transmission Date: 20081010
  Serious: Yes (Disabling, Other)
  Sender: FDA-Public Use
  Company Number: US-KINGPHARMUSA00001-K200700551

PATIENT

DRUGS (2)
  1. CORTISPORIN OTIC SOLUTION STERILE [Suspect]
     Dates: start: 19920101
  2. STREPTOMYCIN [Concomitant]
     Indication: PHARYNGITIS STREPTOCOCCAL

REACTIONS (3)
  - DEAFNESS [None]
  - EAR DISCOMFORT [None]
  - SCREAMING [None]
